FAERS Safety Report 7747332-7 (Version None)
Quarter: 2011Q3

REPORT INFORMATION
  Report Type: 
  Country: None (occurrence: None)
  Receive Date: 20110913
  Receipt Date: 20110908
  Transmission Date: 20111222
  Serious: Yes (Other)
  Sender: FDA-Public Use
  Company Number: US-PFIZER INC-2010063165

PATIENT
  Sex: Female
  Weight: 54.422 kg

DRUGS (2)
  1. CHANTIX [Suspect]
     Indication: SMOKING CESSATION THERAPY
     Dosage: UNK
     Dates: start: 20100421, end: 20100101
  2. CHANTIX [Suspect]
     Dosage: 1 MG, 2X/DAY
     Dates: start: 20100101, end: 20100515

REACTIONS (9)
  - CONSTIPATION [None]
  - MALAISE [None]
  - HAEMATOCHEZIA [None]
  - PARANOIA [None]
  - AGITATION [None]
  - DEPRESSION [None]
  - PYREXIA [None]
  - FAECALOMA [None]
  - HAEMATEMESIS [None]
